FAERS Safety Report 9437021 (Version 1)
Quarter: 2013Q3

REPORT INFORMATION
  Report Type: Spontaneous
  Country: US (occurrence: US)
  Receive Date: 20130802
  Receipt Date: 20130802
  Transmission Date: 20140515
  Serious: Yes (Other)
  Sender: FDA-Public Use
  Company Number: US-009507513-1307USA016149

PATIENT
  Sex: Female
  Weight: 77.98 kg

DRUGS (15)
  1. PEG-INTRON [Suspect]
     Dosage: DOSE:120 MCG/0.5ML,FREQUENCY:MIX EACH VIAL WITH 0.7ML OF DILUENT WITHDRAW AND INJECT 0.5 ML
     Dates: start: 2008
  2. REBETOL [Suspect]
     Route: 048
  3. INCIVEK [Suspect]
  4. PEGASYS [Suspect]
  5. CYMBALTA [Concomitant]
  6. NAPROSYN [Concomitant]
  7. XANAX [Concomitant]
  8. NEURONTIN [Concomitant]
  9. VICODIN [Concomitant]
     Dosage: 5-300 MG
  10. SYNTHROID [Concomitant]
  11. PRILOSEC [Concomitant]
     Route: 048
  12. LOSARTAN POTASSIUM TABLETS [Concomitant]
  13. KEPPRA [Concomitant]
  14. FLEXERIL [Concomitant]
  15. PROCRIT [Concomitant]
     Dosage: 10000/ML

REACTIONS (3)
  - Convulsion [Unknown]
  - Blood count abnormal [Recovered/Resolved]
  - Blood count abnormal [Unknown]
